FAERS Safety Report 16742072 (Version 3)
Quarter: 2019Q3

REPORT INFORMATION
  Report Type: Spontaneous
  Country: JP (occurrence: JP)
  Receive Date: 20190826
  Receipt Date: 20190903
  Transmission Date: 20191005
  Serious: Yes (Death, Other)
  Sender: FDA-Public Use
  Company Number: JP-ASTRAZENECA-2019SF21738

PATIENT
  Age: 70 Year
  Sex: Male

DRUGS (7)
  1. DIMETICONE [Concomitant]
     Active Substance: DIMETHICONE
     Dosage: DOSE UNKNOWN
     Route: 065
  2. TROXSIN [Concomitant]
     Active Substance: TROXIPIDE
     Dosage: DOSE UNKNOWN
     Route: 065
  3. SULPIRIDE [Suspect]
     Active Substance: SULPIRIDE
     Dosage: DOSE UNKNOWN
     Route: 065
  4. NEXIUM [Concomitant]
     Active Substance: ESOMEPRAZOLE MAGNESIUM
     Dosage: 20.0MG UNKNOWN
     Route: 048
  5. TELMISARTAN. [Concomitant]
     Active Substance: TELMISARTAN
     Dosage: DOSE UNKNOWN
     Route: 065
  6. CRESTOR [Suspect]
     Active Substance: ROSUVASTATIN CALCIUM
     Dosage: 2.5MG UNKNOWN
     Route: 048
  7. JUVELA [Concomitant]
     Active Substance: .ALPHA.-TOCOPHEROL\RETINOL
     Dosage: DOSE UNKNOWN
     Route: 065

REACTIONS (2)
  - Rhabdomyolysis [Fatal]
  - Neuroleptic malignant syndrome [Fatal]
